FAERS Safety Report 9556918 (Version 2)
Quarter: 2013Q4

REPORT INFORMATION
  Report Type: Spontaneous
  Country: US (occurrence: US)
  Receive Date: 20130926
  Receipt Date: 20131007
  Transmission Date: 20140711
  Serious: Yes (Death, Other)
  Sender: FDA-Public Use
  Company Number: US-PFIZER INC-2013274218

PATIENT
  Age: 42 Year
  Sex: Male

DRUGS (7)
  1. SUTENT [Suspect]
     Indication: RENAL CANCER
     Dosage: 50 MG, 1X/DAY
     Dates: start: 20130906, end: 201309
  2. SUTENT [Suspect]
     Dosage: UNK
     Dates: start: 201309
  3. METOPROLOL [Concomitant]
     Dosage: 25 MG, UNK
     Route: 048
  4. LOPID [Concomitant]
     Dosage: 600 MG, UNK
  5. DEXAMETHASONE [Concomitant]
     Dosage: 4 MG, UNK
     Route: 048
  6. OXYCODONE [Concomitant]
     Dosage: UNK
  7. DOCUSATE [Concomitant]
     Dosage: 100 MG, UNK

REACTIONS (8)
  - Disease progression [Fatal]
  - Renal cancer [Fatal]
  - Rectal haemorrhage [Unknown]
  - Rectal ulcer [Unknown]
  - White blood cell count decreased [Unknown]
  - Constipation [Unknown]
  - Oral pain [Unknown]
  - Herpes simplex [Unknown]
